APPROVED DRUG PRODUCT: TOBRAMYCIN SULFATE IN SODIUM CHLORIDE 0.9% IN PLASTIC CONTAINER
Active Ingredient: TOBRAMYCIN SULFATE
Strength: EQ 80MG BASE/100ML
Dosage Form/Route: INJECTABLE;INJECTION
Application: A063081 | Product #001
Applicant: HOSPIRA INC
Approved: Jul 31, 1990 | RLD: No | RS: No | Type: DISCN